FAERS Safety Report 12866091 (Version 2)
Quarter: 2016Q4

REPORT INFORMATION
  Report Type: Spontaneous
  Country: FR (occurrence: FR)
  Receive Date: 20161020
  Receipt Date: 20161221
  Transmission Date: 20170207
  Serious: Yes (Hospitalization)
  Sender: FDA-Public Use
  Company Number: FR-PFIZER INC-2016483632

PATIENT
  Age: 67 Year
  Sex: Female

DRUGS (11)
  1. IOMERON [Suspect]
     Active Substance: IOMEPROL
     Dosage: UNK
     Route: 022
     Dates: start: 20160920, end: 20160920
  2. TAHOR [Suspect]
     Active Substance: ATORVASTATIN CALCIUM
     Dosage: 80 MG, 1X/DAY
     Route: 048
     Dates: start: 20160920, end: 20160920
  3. STAGID [Suspect]
     Active Substance: METFORMIN PAMOATE
     Dosage: 700 MG, 1X/DAY
     Route: 048
     Dates: start: 20160920, end: 20160920
  4. ELIQUIS [Concomitant]
     Active Substance: APIXABAN
     Dosage: 10 MG, DAILY
  5. PANTOPRAZOLE SODIUM. [Suspect]
     Active Substance: PANTOPRAZOLE SODIUM
     Dosage: 20 MG, 1X/DAY
     Route: 048
     Dates: start: 20160920, end: 20160920
  6. KARDEGIC [Suspect]
     Active Substance: ASPIRIN LYSINE
     Dosage: 75 MG, 1X/DAY
     Route: 048
     Dates: start: 20160919, end: 20160920
  7. ACEBUTOLOL ARROW [Suspect]
     Active Substance: ACEBUTOLOL
     Dosage: UNK, TWICE
     Route: 048
     Dates: start: 20160920, end: 20160920
  8. AMLODIPINE [Suspect]
     Active Substance: AMLODIPINE BESYLATE
     Dosage: 5 MG, 1X/DAY
     Route: 048
     Dates: start: 20160920, end: 20160920
  9. IOMERON [Suspect]
     Active Substance: IOMEPROL
     Dosage: UNK
     Route: 042
     Dates: start: 20160919, end: 20160919
  10. CLOPIDOGREL [Suspect]
     Active Substance: CLOPIDOGREL BISULFATE
     Dosage: 75 MG, 1X/DAY
     Route: 048
     Dates: start: 20160920, end: 20160920
  11. KENZEN [Concomitant]
     Active Substance: CANDESARTAN
     Dosage: 24 MG, DAILY

REACTIONS (1)
  - Rash morbilliform [Recovering/Resolving]

NARRATIVE: CASE EVENT DATE: 20160920
